FAERS Safety Report 10357921 (Version 1)
Quarter: 2014Q3

REPORT INFORMATION
  Report Type: Spontaneous
  Country: JP (occurrence: JP)
  Receive Date: 20140801
  Receipt Date: 20140801
  Transmission Date: 20150326
  Serious: Yes (Death, Hospitalization)
  Sender: FDA-Public Use
  Company Number: JP-GLAXOSMITHKLINE-B1009058A

PATIENT
  Age: 57 Year
  Sex: Female
  Weight: 56 kg

DRUGS (1)
  1. HYCAMTIN [Suspect]
     Active Substance: TOPOTECAN HYDROCHLORIDE
     Indication: OVARIAN CANCER RECURRENT
     Dosage: .8MGM2 PER DAY
     Route: 042
     Dates: start: 20130205, end: 20130405

REACTIONS (7)
  - White blood cell count decreased [Recovered/Resolved]
  - Nausea [Unknown]
  - Anaemia [Unknown]
  - Neutrophil count decreased [Unknown]
  - Platelet count decreased [Unknown]
  - Malaise [Recovered/Resolved]
  - Ovarian cancer recurrent [Fatal]

NARRATIVE: CASE EVENT DATE: 20130212
